FAERS Safety Report 9459928 (Version 1)
Quarter: 2013Q3

REPORT INFORMATION
  Report Type: Spontaneous
  Country: US (occurrence: None)
  Receive Date: 20130815
  Receipt Date: 20130815
  Transmission Date: 20140515
  Serious: Yes (Death, Hospitalization)
  Sender: FDA-Public Use
  Company Number: None

PATIENT
  Age: 80 Year
  Sex: Male

DRUGS (1)
  1. CALCIUM GLUCONATE [Suspect]
     Dates: start: 20130722, end: 20130730

REACTIONS (1)
  - Product compounding quality issue [None]
